FAERS Safety Report 9243283 (Version 3)
Quarter: 2013Q4

REPORT INFORMATION
  Report Type: Report from Study
  Country: US (occurrence: US)
  Receive Date: 20130419
  Receipt Date: 20131015
  Transmission Date: 20140711
  Serious: Yes (Hospitalization, Other)
  Sender: FDA-Public Use
  Company Number: US-009507513-1304USA000578

PATIENT
  Age: 60 Year
  Sex: Female
  Weight: 121.7 kg

DRUGS (6)
  1. BOCEPREVIR [Suspect]
     Indication: HEPATIC CIRRHOSIS
     Dosage: 800 MG, TID
     Route: 048
     Dates: start: 20130327
  2. BOCEPREVIR [Suspect]
     Indication: CHRONIC HEPATITIS C
  3. PEG-INTRON [Suspect]
     Indication: HEPATIC CIRRHOSIS
     Dosage: 150 MICROGRAM, QW
     Route: 058
     Dates: start: 20130225, end: 20130303
  4. PEG-INTRON [Suspect]
     Indication: CHRONIC HEPATITIS C
     Dosage: 150 MICROGRAM, QW
     Route: 058
     Dates: start: 20130314, end: 20130325
  5. REBETOL [Suspect]
     Indication: HEPATIC CIRRHOSIS
     Dosage: 600 MICROGRAM, BID
     Route: 048
     Dates: start: 20130225, end: 20130303
  6. REBETOL [Suspect]
     Indication: CHRONIC HEPATITIS C
     Dosage: 600 MICROGRAM, BID
     Route: 048
     Dates: start: 20130314, end: 20130327

REACTIONS (2)
  - Neutropenia [Recovered/Resolved with Sequelae]
  - Diarrhoea [Recovered/Resolved]
